FAERS Safety Report 7066636-7 (Version None)
Quarter: 2010Q4

REPORT INFORMATION
  Report Type: 
  Country: None (occurrence: None)
  Receive Date: 20101027
  Receipt Date: 20100831
  Transmission Date: 20110411
  Serious: No
  Sender: FDA-Public Use
  Company Number: US-WYE-H16631810

PATIENT
  Sex: Female
  Weight: 70.37 kg

DRUGS (4)
  1. PREMPRO [Suspect]
     Indication: DYSPAREUNIA
     Dosage: 0.3MG/1.5MG DAILY
     Route: 048
     Dates: start: 20060601
  2. VITAMIN TAB [Concomitant]
  3. PREMARIN [Suspect]
     Indication: DYSPAREUNIA
     Dosage: 0.5G ONCE DAILY FOR 2 WEEKS THEN 0.5G TWICE WEEKLY OR EVERY 3 DAYS
     Route: 067
     Dates: start: 20100626
  4. SYNTHROID [Concomitant]

REACTIONS (2)
  - DRUG INEFFECTIVE [None]
  - VAGINAL LACERATION [None]
